FAERS Safety Report 7819882-6 (Version None)
Quarter: 2011Q4

REPORT INFORMATION
  Report Type: 
  Country: None (occurrence: None)
  Receive Date: 20111018
  Receipt Date: 20100831
  Transmission Date: 20120403
  Serious: Yes (Other)
  Sender: FDA-Public Use
  Company Number: US-ASTRAZENECA-2010SE41033

PATIENT
  Age: 63 Year
  Sex: Male

DRUGS (1)
  1. SYMBICORT [Suspect]
     Indication: ASTHMA
     Dosage: 160/4.5 UG 2 PUFFS IN AM AND 2 PUFFS IN PM
     Route: 055

REACTIONS (6)
  - SINUSITIS [None]
  - PURULENT DISCHARGE [None]
  - ALOPECIA [None]
  - INFLAMMATION [None]
  - SINUS OPERATION [None]
  - DRUG INEFFECTIVE [None]
